FAERS Safety Report 15096467 (Version 1)
Quarter: 2018Q3

REPORT INFORMATION
  Report Type: Spontaneous
  Country: FR (occurrence: FR)
  Receive Date: 20180702
  Receipt Date: 20180702
  Transmission Date: 20181010
  Serious: Yes (Other)
  Sender: FDA-Public Use
  Company Number: PHHY2018FR030355

PATIENT
  Age: 57 Year
  Sex: Female

DRUGS (2)
  1. EXEMESTANE. [Concomitant]
     Active Substance: EXEMESTANE
     Indication: BREAST CANCER
     Dosage: UNK
     Route: 065
  2. AFINITOR [Suspect]
     Active Substance: EVEROLIMUS
     Indication: BREAST CANCER
     Dosage: UNK
     Route: 065
     Dates: start: 20180226, end: 20180312

REACTIONS (6)
  - Mucosal inflammation [Unknown]
  - Transaminases increased [Recovered/Resolved]
  - Pancytopenia [Unknown]
  - Hepatocellular injury [Unknown]
  - Neutropenia [Recovered/Resolved]
  - Anaemia [Unknown]
